FAERS Safety Report 6836685-X (Version None)
Quarter: 2010Q3

REPORT INFORMATION
  Report Type: 
  Country: None (occurrence: None)
  Receive Date: 20100713
  Receipt Date: 20100630
  Transmission Date: 20110219
  Serious: Yes (Hospitalization, Other)
  Sender: FDA-Public Use
  Company Number: PHHY2010JP43250

PATIENT
  Age: 9 Year
  Sex: Female

DRUGS (4)
  1. CICLOSPORIN [Suspect]
     Indication: RENAL TRANSPLANT
  2. PREDNISOLONE [Concomitant]
     Indication: RENAL TRANSPLANT
  3. MYCOPHENOLATE MOFETIL [Concomitant]
     Indication: RENAL TRANSPLANT
  4. LEUPROLIDE ACETATE [Concomitant]
     Indication: PRECOCIOUS PUBERTY

REACTIONS (3)
  - BLOOD CREATININE INCREASED [None]
  - H1N1 INFLUENZA [None]
  - PRECOCIOUS PUBERTY [None]
